FAERS Safety Report 9472119 (Version 1)
Quarter: 2013Q3

REPORT INFORMATION
  Report Type: Spontaneous
  Country: FR (occurrence: FR)
  Receive Date: 20130823
  Receipt Date: 20130823
  Transmission Date: 20140515
  Serious: Yes (Hospitalization, Other)
  Sender: FDA-Public Use
  Company Number: FR-AMGEN-FRASP2013059115

PATIENT
  Age: 78 Year
  Sex: Female

DRUGS (12)
  1. ENBREL [Suspect]
     Indication: RHEUMATOID ARTHRITIS
     Dosage: 50 MG, WEEKLY
     Route: 058
     Dates: start: 20070523, end: 20120802
  2. METHOTREXATE [Suspect]
     Indication: RHEUMATOID ARTHRITIS
     Dosage: UNK
     Route: 048
     Dates: start: 2005, end: 20120830
  3. KARDEGIC [Concomitant]
     Dosage: UNK
  4. CRESTOR [Concomitant]
     Dosage: UNK
  5. SECTRAL [Concomitant]
     Dosage: UNK
  6. LISINOPRIL [Concomitant]
     Dosage: UNK
  7. BETASERC                           /00141801/ [Concomitant]
     Dosage: UNK
  8. TANGANIL                           /00129601/ [Concomitant]
     Dosage: UNK
  9. TOPALGIC                           /00599202/ [Concomitant]
     Dosage: TWICE DAILY
  10. VOLTARENE                          /00372302/ [Concomitant]
     Dosage: UNK
  11. MOVICOL                            /01749801/ [Concomitant]
     Dosage: UNK
  12. LANSOPRAZOLE [Concomitant]
     Dosage: UNK

REACTIONS (2)
  - Arthritis [Recovered/Resolved]
  - Arthritis bacterial [Recovered/Resolved]
